FAERS Safety Report 7650105-7 (Version None)
Quarter: 2011Q3

REPORT INFORMATION
  Report Type: 
  Country: None (occurrence: None)
  Receive Date: 20110719
  Receipt Date: 20100914
  Transmission Date: 20111222
  Serious: Yes (Other)
  Sender: FDA-Public Use
  Company Number: 163-50794-10091601

PATIENT

DRUGS (1)
  1. VIDAZA [Suspect]
     Indication: CHRONIC MYELOMONOCYTIC LEUKAEMIA
     Dosage: 75 MG/M2, 7 DAYS ; 100 MG/M2, 5 DAYS EVERY 4 WEEKS

REACTIONS (3)
  - PANCYTOPENIA [None]
  - INJECTION SITE IRRITATION [None]
  - FATIGUE [None]
